FAERS Safety Report 25699824 (Version 1)
Quarter: 2025Q3

REPORT INFORMATION
  Report Type: Spontaneous
  Country: US (occurrence: US)
  Receive Date: 20250819
  Receipt Date: 20250819
  Transmission Date: 20251020
  Serious: Yes (Death, Hospitalization, Other)
  Sender: AMGEN
  Company Number: US-AMGEN-USASP2025159725

PATIENT

DRUGS (3)
  1. PREDNISONE [Suspect]
     Active Substance: PREDNISONE
     Indication: Immunosuppressant drug therapy
     Route: 065
  2. BASILIXIMAB [Suspect]
     Active Substance: BASILIXIMAB
     Indication: Immunosuppressant drug therapy
     Route: 065
  3. MYCOPHENOLIC ACID [Concomitant]
     Active Substance: MYCOPHENOLIC ACID
     Indication: Immunosuppressant drug therapy
     Route: 065

REACTIONS (16)
  - Death [Fatal]
  - Aspergillus infection [Unknown]
  - Pneumonia viral [Unknown]
  - Pneumonia bacterial [Unknown]
  - Sepsis [Unknown]
  - Cytomegalovirus viraemia [Unknown]
  - Epstein-Barr viraemia [Unknown]
  - Polyomavirus viraemia [Unknown]
  - Varicella zoster viraemia [Unknown]
  - Liver transplant rejection [Unknown]
  - Kidney transplant rejection [Unknown]
  - JC virus infection [Unknown]
  - Multiple organ transplant rejection [Unknown]
  - Renal transplant failure [Unknown]
  - Unevaluable event [Unknown]
  - Liver transplant [Unknown]
